FAERS Safety Report 7555805-5 (Version None)
Quarter: 2011Q2

REPORT INFORMATION
  Report Type: 
  Country: None (occurrence: None)
  Receive Date: 20110618
  Receipt Date: 20110203
  Transmission Date: 20111010
  Serious: Yes (Hospitalization, Other)
  Sender: FDA-Public Use
  Company Number: US-BAYER-201024006NA

PATIENT
  Age: 23 Year
  Sex: Female
  Weight: 61.224 kg

DRUGS (11)
  1. DROSPIRENONE AND ETHINYL ESTRADIOL [Suspect]
     Indication: PRODUCT USED FOR UNKNOWN INDICATION
     Dosage: UNK UNK, UNK
     Route: 048
     Dates: start: 20071001, end: 20091215
  2. YAZ [Suspect]
     Indication: ORAL CONTRACEPTION
     Dosage: UNK UNK, QD
     Route: 048
     Dates: start: 20071020, end: 20091215
  3. LORTAB [Concomitant]
     Dosage: 75 MG, UNK
     Dates: start: 20090112
  4. IBUPROFEN (ADVIL) [Concomitant]
  5. PROTONIX [Concomitant]
     Dosage: 40 MG, UNK
     Route: 048
  6. LEVBID [Concomitant]
     Dosage: 0375 MG, BID
     Route: 048
  7. YASMIN [Suspect]
     Indication: PRODUCT USED FOR UNKNOWN INDICATION
     Dosage: UNK UNK, UNK
     Route: 048
     Dates: start: 20071001, end: 20091215
  8. CLARITIN [Concomitant]
     Dosage: 10 MG, UNK
     Route: 048
  9. ALEVE [Concomitant]
  10. MOTRIN [Concomitant]
     Dosage: 800 MG, UNK
     Route: 048
  11. TYLOX [OXYCODONE HYDROCHLORIDE,OXYCODONE TEREPHTHALATE,PARACETAMOL] [Concomitant]
     Dosage: UNK UNK, PRN
     Route: 048
     Dates: start: 20080815

REACTIONS (10)
  - CHOLELITHIASIS [None]
  - SCAR [None]
  - VAGINAL HAEMORRHAGE [None]
  - ABDOMINAL PAIN [None]
  - PAIN [None]
  - EMOTIONAL DISTRESS [None]
  - DIARRHOEA [None]
  - FOOD INTOLERANCE [None]
  - CHOLECYSTITIS CHRONIC [None]
  - ABDOMINAL PAIN UPPER [None]
